FAERS Safety Report 4616495-4 (Version None)
Quarter: 2005Q1

REPORT INFORMATION
  Report Type: 
  Country: None (occurrence: None)
  Receive Date: 20050318
  Receipt Date: 20050311
  Transmission Date: 20050727
  Serious: Yes (Other)
  Sender: FDA-Public Use
  Company Number: 2005040445

PATIENT
  Age: 20 Year
  Sex: Male

DRUGS (3)
  1. NEURONTIN [Suspect]
     Indication: PETIT MAL EPILEPSY
     Dosage: 4800 MG (800 MG, 6 IN 1 D), ORAL
     Route: 048
  2. INSULIN [Concomitant]
  3. LAMOTRIGINE [Concomitant]

REACTIONS (2)
  - PETIT MAL EPILEPSY [None]
  - PHARMACEUTICAL PRODUCT COMPLAINT [None]
